FAERS Safety Report 6555151-2 (Version None)
Quarter: 2010Q1

REPORT INFORMATION
  Report Type: 
  Country: None (occurrence: None)
  Receive Date: 20100126
  Receipt Date: 20100126
  Transmission Date: 20100710
  Serious: Yes (Other)
  Sender: FDA-Public Use
  Company Number: None

PATIENT
  Sex: Male
  Weight: 89.3586 kg

DRUGS (2)
  1. CIPROFLOXACIN HCL [Suspect]
     Indication: OSTEOMYELITIS
     Dosage: 500 BID  GREATER THAN 1 MONTH
  2. PERCOCET [Suspect]
     Dosage: 1-2 Q4 HOURS  MORE THAN 1 MONTH

REACTIONS (5)
  - DRUG EFFECT DECREASED [None]
  - NAUSEA [None]
  - PRODUCT SUBSTITUTION ISSUE [None]
  - THERAPEUTIC RESPONSE UNEXPECTED [None]
  - WOUND DRAINAGE [None]
